FAERS Safety Report 20611441 (Version 1)
Quarter: 2022Q1

REPORT INFORMATION
  Report Type: Spontaneous
  Country: FR (occurrence: FR)
  Receive Date: 20220318
  Receipt Date: 20220318
  Transmission Date: 20220424
  Serious: Yes (Hospitalization)
  Sender: FDA-Public Use
  Company Number: FR-NOVARTISPH-NVSC2022FR059870

PATIENT
  Age: 81 Year
  Sex: Female
  Weight: 48 kg

DRUGS (18)
  1. ACETAMINOPHEN [Suspect]
     Active Substance: ACETAMINOPHEN
     Indication: Product used for unknown indication
     Dosage: UNK
     Route: 065
  2. CLONAZEPAM [Interacting]
     Active Substance: CLONAZEPAM
     Indication: Product used for unknown indication
     Dosage: UNK (12 GTT, DAILY IN THE EVENING)
     Route: 065
     Dates: start: 20210428
  3. PANTOPRAZOLE [Suspect]
     Active Substance: PANTOPRAZOLE
     Indication: Product used for unknown indication
     Dosage: UNK, QD (1 TABLET IN THE EVENING)
     Route: 065
  4. LEVOTHYROXINE [Suspect]
     Active Substance: LEVOTHYROXINE
     Indication: Product used for unknown indication
     Dosage: UNK, QD (1 TABLET IN THE MORNING)
     Route: 065
  5. LIDOCAINE HYDROCHLORIDE [Suspect]
     Active Substance: LIDOCAINE HYDROCHLORIDE
     Indication: Product used for unknown indication
     Dosage: UNK
     Route: 065
  6. VENLAFAXINE [Suspect]
     Active Substance: VENLAFAXINE HYDROCHLORIDE
     Indication: Product used for unknown indication
     Dosage: UNK (1 CAPSULE MORNING AND EVENING)
     Route: 065
  7. HYDROCORTISONE [Suspect]
     Active Substance: HYDROCORTISONE
     Indication: Product used for unknown indication
     Dosage: UNK (1.5 TABLET IN THE MORNING)
     Route: 065
  8. CANDESARTAN [Suspect]
     Active Substance: CANDESARTAN
     Indication: Product used for unknown indication
     Dosage: UNK, QD (1 TABLET IN THE MORNING)
     Route: 065
  9. FENTANYL [Suspect]
     Active Substance: FENTANYL
     Indication: Product used for unknown indication
     Dosage: UNK
     Route: 065
     Dates: start: 20210428
  10. TEGRETOL [Interacting]
     Active Substance: CARBAMAZEPINE
     Indication: Product used for unknown indication
     Dosage: 1 ML (1 ML, TID WEEK 1)
     Route: 065
     Dates: start: 202104, end: 20210428
  11. TEGRETOL [Interacting]
     Active Substance: CARBAMAZEPINE
     Dosage: 2 ML (2 ML, TID WEEK 2)
     Route: 065
  12. TEGRETOL [Interacting]
     Active Substance: CARBAMAZEPINE
     Dosage: 3 ML (3 ML, TID WEEK 2)
     Route: 065
  13. TEGRETOL [Interacting]
     Active Substance: CARBAMAZEPINE
     Dosage: 4 ML (4 ML, TID WEEK 2)
     Route: 065
  14. TEGRETOL [Interacting]
     Active Substance: CARBAMAZEPINE
     Dosage: 5 ML (5 ML, TID WEEK 2)
     Route: 065
  15. MORPHINE SULFATE [Suspect]
     Active Substance: MORPHINE SULFATE
     Indication: Product used for unknown indication
     Dosage: UNK (4 CAPSULES / DAY)
     Route: 065
  16. AMITRIPTYLINE HYDROCHLORIDE [Suspect]
     Active Substance: AMITRIPTYLINE HYDROCHLORIDE
     Indication: Product used for unknown indication
     Dosage: UNK (10 GTT, DAILY IN THE EVENING)
     Route: 065
     Dates: start: 20210428
  17. LERCANIDIPINE [Suspect]
     Active Substance: LERCANIDIPINE
     Indication: Product used for unknown indication
     Dosage: UNK (1 TABLET IN THE MORNING AND EVENING)
     Route: 065
  18. KARDEGIC [Suspect]
     Active Substance: ASPIRIN DL-LYSINE
     Indication: Product used for unknown indication
     Dosage: UNK (1 BAG AT NOON)
     Route: 065

REACTIONS (2)
  - Ataxia [Recovering/Resolving]
  - Dysarthria [Recovering/Resolving]

NARRATIVE: CASE EVENT DATE: 20210428
